FAERS Safety Report 24536765 (Version 1)
Quarter: 2024Q4

REPORT INFORMATION
  Report Type: Spontaneous
  Country: US (occurrence: US)
  Receive Date: 20241022
  Receipt Date: 20241022
  Transmission Date: 20250114
  Serious: No
  Sender: SANOFI AVENTIS
  Company Number: US-SA-2024SA301761

PATIENT
  Age: 55 Year

DRUGS (7)
  1. DUPIXENT [Suspect]
     Active Substance: DUPILUMAB
     Indication: Dermatitis atopic
     Dosage: UNK
     Dates: start: 2018
  2. TRALOKINUMAB [Concomitant]
     Active Substance: TRALOKINUMAB
  3. ADVIL [Concomitant]
     Active Substance: IBUPROFEN
  4. APREMILAST [Concomitant]
     Active Substance: APREMILAST
  5. ROFLUMILAST [Concomitant]
     Active Substance: ROFLUMILAST
  6. CYCLOSPORINE [Concomitant]
     Active Substance: CYCLOSPORINE
  7. SEMAGLUTIDE [Concomitant]
     Active Substance: SEMAGLUTIDE

REACTIONS (8)
  - Weight increased [Not Recovered/Not Resolved]
  - Eye infection [Not Recovered/Not Resolved]
  - Psoriasis [Not Recovered/Not Resolved]
  - Hypertension [Not Recovered/Not Resolved]
  - Cellulitis [Not Recovered/Not Resolved]
  - Arthralgia [Not Recovered/Not Resolved]
  - Dermatitis atopic [Not Recovered/Not Resolved]
  - Inappropriate schedule of product administration [Unknown]
